FAERS Safety Report 10676890 (Version 3)
Quarter: 2015Q2

REPORT INFORMATION
  Report Type: Report from Study
  Country: JP (occurrence: JP)
  Receive Date: 20141226
  Receipt Date: 20150527
  Transmission Date: 20150821
  Serious: Yes (Life-Threatening, Hospitalization, Other)
  Sender: FDA-Public Use
  Company Number: JP-009507513-1412JPN010010

PATIENT
  Age: 74 Year
  Sex: Male

DRUGS (15)
  1. DIAZOXIDE [Suspect]
     Active Substance: DIAZOXIDE
     Dosage: 75 MG, BID
     Route: 048
     Dates: start: 20141026, end: 20141101
  2. UBRETID [Concomitant]
     Active Substance: DISTIGMINE BROMIDE
     Indication: BENIGN PROSTATIC HYPERPLASIA
     Dosage: 5 MG, QD, DIVIDED DOSE FREQUENCY UNKNOWN, FORMULATION: POR
     Route: 048
  3. SULBACILLIN [Concomitant]
     Active Substance: AMPICILLIN SODIUM\SULBACTAM SODIUM
     Indication: PNEUMONIA ASPIRATION
     Dosage: 12 G, QD, DIVIDED DOSE FREQUENCY UNKNOWN
     Route: 042
     Dates: start: 20140529, end: 20140605
  4. DIAZOXIDE [Suspect]
     Active Substance: DIAZOXIDE
     Indication: HYPOGLYCAEMIA
     Dosage: 150 MG, TID
     Route: 048
     Dates: start: 20140522, end: 20140525
  5. AMLODIN OD [Concomitant]
     Active Substance: AMLODIPINE BESYLATE
     Indication: HYPERTENSION
     Dosage: 5 MG, QD, DIVIDED DOSE FREQUENCY UNKNOWN
     Route: 048
  6. URSO [Concomitant]
     Active Substance: URSODIOL
     Indication: HEPATIC FUNCTION ABNORMAL
     Dosage: 600 MG, QD (FREQUENCY POR), DIVIDED FREQUENCY UNKNOWN
     Route: 048
  7. DIAZOXIDE [Suspect]
     Active Substance: DIAZOXIDE
     Dosage: 250 MG, QD; 75 MG IN THE MORNING AND 175MG IN THE EVENING
     Route: 048
     Dates: start: 20141102, end: 20141116
  8. DIAZOXIDE [Suspect]
     Active Substance: DIAZOXIDE
     Dosage: 75 MG, BID
     Route: 048
     Dates: start: 20140613, end: 20140630
  9. TAKEPRON [Concomitant]
     Active Substance: LANSOPRAZOLE
     Indication: PROPHYLAXIS AGAINST GASTROINTESTINAL ULCER
     Dosage: 15 MG, QD, DIVIDED FREQUENCY UNKNOWN
     Route: 048
  10. DEPAKENE [Concomitant]
     Active Substance: VALPROIC ACID
     Indication: CEREBROVASCULAR ACCIDENT
     Dosage: 8 ML, QD, DIVIDED FREQUENCY UNKNOWN
     Route: 048
  11. DIAZOXIDE [Suspect]
     Active Substance: DIAZOXIDE
     Dosage: 100 MG, TID
     Route: 048
     Dates: start: 20140526, end: 20140526
  12. SANDOSTATIN [Concomitant]
     Active Substance: OCTREOTIDE ACETATE
     Indication: HYPOGLYCAEMIA
     Dosage: 200 MICROGRAM, QD, DIVIDED DOSE FREQUENCY UNKNOWN
     Route: 058
     Dates: start: 20140518, end: 20140520
  13. DIAZOXIDE [Suspect]
     Active Substance: DIAZOXIDE
     Dosage: 125 MG, BID
     Route: 048
     Dates: start: 20140701, end: 20140827
  14. DIAZOXIDE [Suspect]
     Active Substance: DIAZOXIDE
     Dosage: 250 MG, QD; 75 MG IN THE MORNING AND 250 MG IN THE EVENING
     Route: 048
     Dates: start: 20141117
  15. PLAVIX [Concomitant]
     Active Substance: CLOPIDOGREL BISULFATE
     Indication: PROPHYLAXIS
     Dosage: 50 MG, QD (FORMULATION= POR); DIVIDED DOSE FREQUENCY UNKNOWN
     Route: 048

REACTIONS (10)
  - Diabetic hyperosmolar coma [Recovered/Resolved]
  - Hepatic function abnormal [Recovering/Resolving]
  - Pneumonia [Recovering/Resolving]
  - Pneumonia aspiration [Recovered/Resolved]
  - Pneumonia aspiration [Recovering/Resolving]
  - Hyperglycaemia [Recovered/Resolved]
  - Pneumonia aspiration [Recovered/Resolved]
  - Dehydration [Recovered/Resolved]
  - Urinary tract infection [Recovered/Resolved]
  - Pneumonia aspiration [Recovering/Resolving]

NARRATIVE: CASE EVENT DATE: 20140530
